FAERS Safety Report 6237667-1 (Version None)
Quarter: 2009Q2

REPORT INFORMATION
  Report Type: 
  Country: None (occurrence: None)
  Receive Date: 20090619
  Receipt Date: 20090617
  Transmission Date: 20091009
  Serious: Yes (Death)
  Sender: FDA-Public Use
  Company Number: US-GILEAD-2009-0022587

PATIENT
  Sex: Female
  Weight: 85.806 kg

DRUGS (15)
  1. LETAIRIS [Suspect]
     Indication: PULMONARY ARTERIAL HYPERTENSION
     Route: 048
     Dates: start: 20080105
  2. LETAIRIS [Suspect]
     Route: 048
     Dates: start: 20070701
  3. REMODULIN [Concomitant]
  4. REVATIO [Concomitant]
  5. COUMADIN [Concomitant]
  6. LASIX [Concomitant]
  7. OMNARIS [Concomitant]
  8. CLARITIN [Concomitant]
  9. FERROUS SULFATE TAB [Concomitant]
  10. DARVOCET-N 100 [Concomitant]
  11. VITAMIN D [Concomitant]
  12. ASCORBIC ACID [Concomitant]
  13. MULTI-VITAMINS [Concomitant]
  14. SLOW-MAG [Concomitant]
  15. POTASSIUM CHLORIDE [Concomitant]

REACTIONS (2)
  - PULMONARY ARTERIAL HYPERTENSION [None]
  - RIGHT VENTRICULAR FAILURE [None]
